FAERS Safety Report 4838138-7 (Version None)
Quarter: 2005Q4

REPORT INFORMATION
  Report Type: 
  Country: None (occurrence: None)
  Receive Date: 20051123
  Receipt Date: 20051123
  Transmission Date: 20060501
  Serious: Yes (Life-Threatening, Hospitalization)
  Sender: FDA-Public Use
  Company Number: None

PATIENT
  Age: 60 Year
  Sex: Male

DRUGS (8)
  1. WARFARIN [Suspect]
     Indication: THROMBOSIS PROPHYLAXIS
     Dosage: 5 MG QD
     Dates: start: 20050430, end: 20050522
  2. ASPIRIN [Suspect]
     Indication: ACUTE MYOCARDIAL INFARCTION
     Dosage: 325 MG QD
  3. CLOPIDOGREL [Suspect]
     Dosage: 75 MG QD
  4. LISINOPRIL [Concomitant]
  5. NITROGLYCERIN [Concomitant]
  6. ATORVASTATIN [Concomitant]
  7. CARVEDILOL [Concomitant]
  8. LASIX [Concomitant]

REACTIONS (4)
  - BLOOD PRESSURE DECREASED [None]
  - DIZZINESS [None]
  - GASTROINTESTINAL HAEMORRHAGE [None]
  - MELAENA [None]
